FAERS Safety Report 4640207-1 (Version None)
Quarter: 2005Q2

REPORT INFORMATION
  Report Type: 
  Country: None (occurrence: None)
  Receive Date: 20050419
  Receipt Date: 20050407
  Transmission Date: 20051028
  Serious: Yes (Hospitalization, Other)
  Sender: FDA-Public Use
  Company Number: 200414733BCC

PATIENT
  Age: 75 Year
  Sex: Female
  Weight: 80.2867 kg

DRUGS (5)
  1. BAYER EXTRA STRENGTH ASPIRIN FOR MIGRAINE PAIN [Suspect]
     Indication: EYE PAIN
     Dosage: ORAL
     Route: 048
     Dates: end: 20050806
  2. BAYER EXTRA STRENGTH ASPIRIN FOR MIGRAINE PAIN [Suspect]
     Indication: FACIAL PAIN
     Dosage: ORAL
     Route: 048
     Dates: end: 20050806
  3. BAYER EXTRA STRENGTH ASPIRIN FOR MIGRAINE PAIN [Suspect]
     Indication: SINUSITIS
     Dosage: ORAL
     Route: 048
     Dates: end: 20050806
  4. ACCUPRIL [Concomitant]
  5. TOPROL-XL [Concomitant]

REACTIONS (19)
  - ADENOMA BENIGN [None]
  - ANAEMIA [None]
  - ASTHENIA [None]
  - BACK PAIN [None]
  - CYST [None]
  - FAECAL OCCULT BLOOD POSITIVE [None]
  - GASTRIC DISORDER [None]
  - GASTRIC ULCER [None]
  - GASTRIC ULCER HAEMORRHAGE [None]
  - GASTROINTESTINAL HAEMORRHAGE [None]
  - HAEMATEMESIS [None]
  - HEART RATE INCREASED [None]
  - HYPOTENSION [None]
  - HYPOVOLAEMIA [None]
  - MASS [None]
  - PALLOR [None]
  - PROCEDURAL COMPLICATION [None]
  - PULSE PRESSURE DECREASED [None]
  - SYNCOPE [None]
